FAERS Safety Report 15069396 (Version 6)
Quarter: 2018Q4

REPORT INFORMATION
  Report Type: Report from Study
  Country: US (occurrence: US)
  Receive Date: 20180626
  Receipt Date: 20181017
  Transmission Date: 20190204
  Serious: Yes (Hospitalization)
  Sender: FDA-Public Use
  Company Number: US-ACTELION-A-NJ2018-174208

PATIENT
  Age: 35 Year
  Sex: Female
  Weight: 51.7 kg

DRUGS (4)
  1. VELETRI [Suspect]
     Active Substance: EPOPROSTENOL
     Dosage: 12 NG/KG, PER MIN
     Route: 042
  2. VELETRI [Suspect]
     Active Substance: EPOPROSTENOL
     Dosage: 16 NG/KG, PER MIN
     Route: 042
     Dates: start: 201807
  3. TADALAFIL. [Concomitant]
     Active Substance: TADALAFIL
  4. VELETRI [Suspect]
     Active Substance: EPOPROSTENOL
     Indication: PULMONARY HYPERTENSION
     Dosage: 14 NG/KG, PER MIN
     Route: 042

REACTIONS (13)
  - Headache [Unknown]
  - Muscle spasms [Unknown]
  - Pulmonary hypertension [Unknown]
  - Heart rate increased [Unknown]
  - Hospitalisation [Not Recovered/Not Resolved]
  - Fluid retention [Unknown]
  - Adverse drug reaction [Unknown]
  - Weight decreased [Unknown]
  - Decreased appetite [Unknown]
  - Drug intolerance [Unknown]
  - Dizziness [Unknown]
  - Nausea [Unknown]
  - Dyspnoea [Unknown]

NARRATIVE: CASE EVENT DATE: 2018
